FAERS Safety Report 5751550-7 (Version None)
Quarter: 2008Q2

REPORT INFORMATION
  Report Type: 
  Country: None (occurrence: None)
  Receive Date: 20080528
  Receipt Date: 20080516
  Transmission Date: 20081010
  Serious: Yes (Hospitalization, Other)
  Sender: FDA-Public Use
  Company Number: PHHO2008US06515

PATIENT
  Sex: Male

DRUGS (4)
  1. AMN107 AMN+CAP [Suspect]
     Indication: CHRONIC MYELOID LEUKAEMIA
     Dosage: 400 MG, BID
     Route: 048
     Dates: start: 20060628, end: 20060705
  2. AMN107 AMN+CAP [Suspect]
     Dosage: 400 MG, QD
     Route: 048
     Dates: start: 20060706, end: 20060706
  3. AMN107 AMN+CAP [Suspect]
     Dosage: NO TREATMENT
     Dates: start: 20060707, end: 20060709
  4. AMN107 AMN+CAP [Suspect]
     Dosage: 400 MG, QD
     Route: 048
     Dates: start: 20060710

REACTIONS (5)
  - BLAST CRISIS IN MYELOGENOUS LEUKAEMIA [None]
  - DRUG INEFFECTIVE [None]
  - LIPASE INCREASED [None]
  - MALIGNANT NEOPLASM PROGRESSION [None]
  - PANCREATITIS [None]
